FAERS Safety Report 10533581 (Version 1)
Quarter: 2014Q4

REPORT INFORMATION
  Report Type: Spontaneous
  Country: US (occurrence: US)
  Receive Date: 20141022
  Receipt Date: 20141022
  Transmission Date: 20150529
  Serious: Yes (Other)
  Sender: FDA-Public Use
  Company Number: US-BRISTOL-MYERS SQUIBB COMPANY-21499579

PATIENT
  Age: 71 Year
  Sex: Female

DRUGS (2)
  1. ONGLYZA [Suspect]
     Active Substance: SAXAGLIPTIN HYDROCHLORIDE
     Indication: TYPE 2 DIABETES MELLITUS
     Route: 048
     Dates: start: 201205
  2. AMARYL [Suspect]
     Active Substance: GLIMEPIRIDE

REACTIONS (2)
  - Gastric banding [Unknown]
  - Blood glucose fluctuation [Not Recovered/Not Resolved]
